FAERS Safety Report 18556680 (Version 1)
Quarter: 2020Q4

REPORT INFORMATION
  Report Type: Spontaneous
  Country: US (occurrence: US)
  Receive Date: 20201128
  Receipt Date: 20201128
  Transmission Date: 20210114
  Serious: Yes (Hospitalization, Other)
  Sender: FDA-Public Use
  Company Number: US-009507513-2011USA015097

PATIENT
  Age: 74 Year
  Sex: Male
  Weight: 96 kg

DRUGS (17)
  1. ROXICODONE [Concomitant]
     Active Substance: OXYCODONE HYDROCHLORIDE
     Indication: PROSTATE CANCER
  2. TOPROL XL [Concomitant]
     Active Substance: METOPROLOL SUCCINATE
     Indication: CARDIAC FAILURE CONGESTIVE
     Dosage: 50 MILLIGRAM, QD
     Route: 048
     Dates: start: 20120727
  3. XTANDI [Suspect]
     Active Substance: ENZALUTAMIDE
     Indication: PROSTATE CANCER METASTATIC
     Route: 048
     Dates: start: 20121024, end: 20121218
  4. ROXICODONE [Concomitant]
     Active Substance: OXYCODONE HYDROCHLORIDE
     Indication: METASTASIS
     Dosage: 5 MILLIGRAM, AS NECESSARY
     Route: 048
     Dates: start: 20120404
  5. TOPROL XL [Concomitant]
     Active Substance: METOPROLOL SUCCINATE
     Indication: CORONARY ARTERY DISEASE
  6. ZANTAC [Concomitant]
     Active Substance: RANITIDINE HYDROCHLORIDE
     Indication: PRODUCT USED FOR UNKNOWN INDICATION
     Dosage: UNKNOWN/D
     Route: 065
  7. XGEVA [Concomitant]
     Active Substance: DENOSUMAB
     Indication: PROSTATE CANCER
  8. LUPRON [Concomitant]
     Active Substance: LEUPROLIDE ACETATE
     Indication: METASTASIS
     Route: 065
     Dates: start: 20111130
  9. AMBIEN [Concomitant]
     Active Substance: ZOLPIDEM TARTRATE
     Indication: SLEEP DISORDER
     Dosage: 5 MILLIGRAM, AS NECESSARY
     Route: 065
     Dates: start: 20120926
  10. DELTASONE [Concomitant]
     Active Substance: PREDNISONE
     Indication: PROSTATE CANCER
  11. LUPRON [Concomitant]
     Active Substance: LEUPROLIDE ACETATE
     Indication: PROSTATE CANCER
  12. LASIX [Suspect]
     Active Substance: FUROSEMIDE
     Indication: CARDIAC FAILURE CONGESTIVE
     Route: 048
     Dates: start: 20120727
  13. PROVENTIL [Concomitant]
     Active Substance: ALBUTEROL
     Indication: CHRONIC OBSTRUCTIVE PULMONARY DISEASE
     Dosage: 2 DOSAGE FORM AS NECESSARY
     Route: 055
  14. XGEVA [Concomitant]
     Active Substance: DENOSUMAB
     Indication: METASTASIS
     Route: 058
  15. DELTASONE [Concomitant]
     Active Substance: PREDNISONE
     Indication: METASTASIS
     Dosage: 10 MILLIGRAM, QD
     Route: 048
  16. PRINIVIL [Suspect]
     Active Substance: LISINOPRIL
     Indication: PRODUCT USED FOR UNKNOWN INDICATION
     Dosage: UNKNOWN/D
     Route: 065
  17. PROVENTIL [Concomitant]
     Active Substance: ALBUTEROL
     Indication: DYSPNOEA
     Dosage: 0.5 MILLILITER, PRN
     Route: 055
     Dates: start: 20120717

REACTIONS (14)
  - Acute kidney injury [Recovering/Resolving]
  - Arthralgia [Recovering/Resolving]
  - Fatigue [Recovering/Resolving]
  - Anaemia of chronic disease [Unknown]
  - Hypotension [Recovering/Resolving]
  - Delirium [Recovered/Resolved]
  - Azotaemia [Unknown]
  - Rhinorrhoea [Recovering/Resolving]
  - Acute kidney injury [Not Recovered/Not Resolved]
  - Haematemesis [Unknown]
  - Bone pain [Recovering/Resolving]
  - Hyperkalaemia [Recovered/Resolved]
  - Hypovolaemic shock [Unknown]
  - Cardiac failure congestive [Not Recovered/Not Resolved]

NARRATIVE: CASE EVENT DATE: 201212
